FAERS Safety Report 8991028 (Version 1)
Quarter: 2012Q4

REPORT INFORMATION
  Report Type: Spontaneous
  Country: IT (occurrence: None)
  Receive Date: 20121220
  Receipt Date: 20121220
  Transmission Date: 20130627
  Serious: Yes (Other)
  Sender: FDA-Public Use
  Company Number: 1527904

PATIENT
  Age: 3 Year
  Sex: Male

DRUGS (11)
  1. CARBOPLATIN [Suspect]
     Indication: NEUROBLASTOMA
  2. CYTARABINE [Suspect]
     Indication: ANAPLASTIC LARGE-CELL LYMPHOMA
  3. METHOTREXATE [Suspect]
     Indication: LYMPHOMA
  4. DEXAMETHASONE [Suspect]
     Indication: LYMPHOMA
  5. ETOPOSIDE [Suspect]
     Indication: NEUROBLASTOMA
  6. CYCLOPHOSPHAMIDE [Suspect]
     Indication: NEUROBLASTOMA
  7. BUSULFAN [Suspect]
     Indication: NEUROBLASTOMA
  8. MELPHALAN [Suspect]
     Indication: NEUROBLASTOMA
  9. IFOSFAMIDE [Suspect]
     Indication: LYMPHOMA
  10. VINBLASTINE [Suspect]
     Indication: LYMPHOMA
  11. RETINOIC ACID [Suspect]
     Indication: LYMPHOMA

REACTIONS (3)
  - Thrombocytopenia [None]
  - Foetal haemoglobin increased [None]
  - Splenomegaly [None]
